FAERS Safety Report 5812381-2 (Version None)
Quarter: 2008Q3

REPORT INFORMATION
  Report Type: 
  Country: None (occurrence: None)
  Receive Date: 20080711
  Receipt Date: 20080703
  Transmission Date: 20090109
  Serious: Yes (Hospitalization, Other)
  Sender: FDA-Public Use
  Company Number: 144-21880-08050308

PATIENT
  Age: 60 Year
  Sex: Female

DRUGS (3)
  1. REVLIMID [Suspect]
     Indication: MULTIPLE MYELOMA
     Dosage: 25 MG, FOR 21 DAYS, ORAL, 10 MG, 1 IN 1 D, ORAL`
     Route: 048
     Dates: start: 20080425, end: 20080504
  2. REVLIMID [Suspect]
     Indication: MULTIPLE MYELOMA
     Dosage: 25 MG, FOR 21 DAYS, ORAL, 10 MG, 1 IN 1 D, ORAL`
     Route: 048
     Dates: start: 20080506
  3. DEXAMETHASONE TAB [Concomitant]

REACTIONS (12)
  - BLOOD CREATINE INCREASED [None]
  - EOSINOPHILIA [None]
  - EYELID OEDEMA [None]
  - GENERAL PHYSICAL HEALTH DETERIORATION [None]
  - HAEMOGLOBIN ABNORMAL [None]
  - INFLAMMATION [None]
  - INFUSION RELATED REACTION [None]
  - MALIGNANT NEOPLASM PROGRESSION [None]
  - MULTIPLE MYELOMA [None]
  - PLATELET COUNT DECREASED [None]
  - PRURITUS [None]
  - RENAL IMPAIRMENT [None]
